FAERS Safety Report 15169469 (Version 1)
Quarter: 2018Q3

REPORT INFORMATION
  Report Type: Report from Study
  Country: ES (occurrence: ES)
  Receive Date: 20180720
  Receipt Date: 20180720
  Transmission Date: 20181010
  Serious: Yes (Other)
  Sender: FDA-Public Use
  Company Number: ES-TEVA-2018-ES-929149

PATIENT
  Age: 25 Year
  Sex: Male

DRUGS (4)
  1. IMUREL 50 MG FILM?LABELED COMPRESSES, 50 TABLETS [Suspect]
     Active Substance: AZATHIOPRINE
     Indication: CROHN^S DISEASE
     Dosage: 300 MILLIGRAM DAILY; FILM?LABELED COMPRESSES
     Route: 048
     Dates: start: 20160509, end: 20160527
  2. METRONIDAZOL (1966A) [Suspect]
     Active Substance: METRONIDAZOLE
     Route: 048
     Dates: start: 20160504, end: 20160527
  3. CIPROFLOXACINO (2049A) [Suspect]
     Active Substance: CIPROFLOXACIN
     Route: 048
     Dates: start: 20160504, end: 20160527
  4. OMEPRAZOL (2141A) [Concomitant]
     Active Substance: OMEPRAZOLE
     Dosage: 20 MILLIGRAM DAILY;
     Dates: start: 20160509

REACTIONS (1)
  - Pancreatitis acute [Recovered/Resolved]

NARRATIVE: CASE EVENT DATE: 20160524
